FAERS Safety Report 13529592 (Version 3)
Quarter: 2017Q3

REPORT INFORMATION
  Report Type: Spontaneous
  Country: US (occurrence: US)
  Receive Date: 20170509
  Receipt Date: 20170905
  Transmission Date: 20171127
  Serious: Yes (Other)
  Sender: FDA-Public Use
  Company Number: US-BAUSCH-BL-2017-012599

PATIENT
  Sex: Male
  Weight: 62.2 kg

DRUGS (5)
  1. XENAZINE [Suspect]
     Active Substance: TETRABENAZINE
     Dosage: DOSE INCREASED
     Route: 048
     Dates: start: 2017
  2. XENAZINE [Suspect]
     Active Substance: TETRABENAZINE
     Dosage: DOSE INCREASED
     Route: 048
     Dates: start: 201702
  3. XENAZINE [Suspect]
     Active Substance: TETRABENAZINE
     Dosage: DOSE ADJUSTMENT
     Route: 048
     Dates: start: 2017
  4. XENAZINE [Suspect]
     Active Substance: TETRABENAZINE
     Indication: HUNTINGTON^S DISEASE
     Route: 048
     Dates: start: 20150824, end: 2017
  5. PRISTIQ EXTENDED-RELEASE [Concomitant]
     Active Substance: DESVENLAFAXINE SUCCINATE
     Indication: PRODUCT USED FOR UNKNOWN INDICATION

REACTIONS (8)
  - Feeding disorder [Unknown]
  - Depressed mood [Unknown]
  - Gait inability [Recovered/Resolved]
  - Weight decreased [Recovering/Resolving]
  - Prescribed overdose [Unknown]
  - Huntington^s disease [Recovering/Resolving]
  - Dyspnoea [Unknown]
  - Drug dose omission [Unknown]

NARRATIVE: CASE EVENT DATE: 2017
